FAERS Safety Report 18745500 (Version 2)
Quarter: 2021Q1

REPORT INFORMATION
  Report Type: Spontaneous
  Country: CN (occurrence: CN)
  Receive Date: 20210115
  Receipt Date: 20210120
  Transmission Date: 20210419
  Serious: No
  Sender: FDA-Public Use
  Company Number: CN-009507513-2101CHN004507

PATIENT
  Age: 11 Year
  Sex: Male
  Weight: 55 kg

DRUGS (5)
  1. FUROSEMIDE. [Suspect]
     Active Substance: FUROSEMIDE
     Indication: DIURETIC THERAPY
     Dosage: 20 MILLIGRAM, Q12H
     Dates: start: 20181015
  2. LOSARTAN POTASSIUM. [Suspect]
     Active Substance: LOSARTAN POTASSIUM
     Indication: HYPERTENSION
     Dosage: 50 MG, QD
     Route: 048
     Dates: start: 20181015, end: 20181019
  3. LOSARTAN POTASSIUM. [Suspect]
     Active Substance: LOSARTAN POTASSIUM
     Indication: PROTEINURIA
     Dosage: 100 MG, QD
     Route: 048
     Dates: start: 20181019
  4. NIFEDIPINE. [Suspect]
     Active Substance: NIFEDIPINE
     Indication: HYPERTENSION
     Dosage: 15 MILLIGRAM, TID
     Route: 048
     Dates: start: 20181015, end: 20181023
  5. NIFEDIPINE. [Suspect]
     Active Substance: NIFEDIPINE
     Indication: PROTEINURIA

REACTIONS (2)
  - Product use in unapproved indication [Unknown]
  - Therapeutic product effect incomplete [Unknown]

NARRATIVE: CASE EVENT DATE: 201810
